FAERS Safety Report 4473451-7 (Version None)
Quarter: 2004Q3

REPORT INFORMATION
  Report Type: 
  Country: None (occurrence: None)
  Receive Date: 20040920
  Receipt Date: 20040628
  Transmission Date: 20050211
  Serious: Yes (Death)
  Sender: FDA-Public Use
  Company Number: S04-USA-03772-01

PATIENT
  Age: 50 Year
  Sex: Female

DRUGS (7)
  1. CELEXA [Suspect]
     Indication: DEPRESSION
     Dates: start: 20030401, end: 20031001
  2. ELDEPRYL [Suspect]
     Indication: PARKINSON'S DISEASE
     Dates: end: 20031001
  3. BETA BLOCKER (NOS) [Concomitant]
  4. IMITREX [Concomitant]
  5. ZYPREXA [Concomitant]
  6. SLEEP MEDICATION (NOS) [Concomitant]
  7. OTHER MEDICATIONS (NOS) [Concomitant]

REACTIONS (1)
  - DEATH [None]
